FAERS Safety Report 4801906-1 (Version None)
Quarter: 2005Q4

REPORT INFORMATION
  Report Type: 
  Country: None (occurrence: None)
  Receive Date: 20051012
  Receipt Date: 20050923
  Transmission Date: 20060501
  Serious: Yes (Hospitalization)
  Sender: FDA-Public Use
  Company Number: 218475

PATIENT
  Age: 64 Year
  Sex: Female

DRUGS (6)
  1. AVASTIN [Suspect]
     Indication: COLORECTAL CANCER
     Dosage: 5 MG/KG, Q2W, INTRAVENOUS
     Route: 042
     Dates: start: 20050601, end: 20050810
  2. OXALIPLATIN(OXALIPLATIN) [Suspect]
     Indication: COLORECTAL CANCER
     Dosage: 85 MG/M2, Q2W, INTRAVENOUS
     Route: 042
     Dates: start: 20050601, end: 20050907
  3. FLUOROURACIL [Suspect]
     Indication: COLORECTAL CANCER
     Dosage: 2400 MG/M2, Q2W, INTRAVENOUS
     Route: 042
     Dates: start: 20050601, end: 20050907
  4. CETUXIMAB(CETUXIMAB) [Suspect]
     Indication: COLORECTAL CANCER
     Dosage: 250 MG/M2,1/WEEK, INTRAVENOUS
     Route: 042
     Dates: start: 20050601, end: 20050907
  5. LEUCOVORIN CALCIUM [Suspect]
     Indication: COLORECTAL CANCER
     Dosage: 400 MG/M2, Q2W, INTRAVENOUS
     Route: 042
     Dates: start: 20050601, end: 20050907
  6. G-CSF (FILGRASTIM) [Concomitant]

REACTIONS (1)
  - HERPES ZOSTER [None]
